FAERS Safety Report 4284173-X (Version None)
Quarter: 2004Q1

REPORT INFORMATION
  Report Type: 
  Country: None (occurrence: None)
  Receive Date: 20040130
  Receipt Date: 20040123
  Transmission Date: 20041129
  Serious: Yes (Other)
  Sender: FDA-Public Use
  Company Number: 2004196151JP

PATIENT
  Age: 33 Year

DRUGS (2)
  1. EPIRUBICIN [Suspect]
     Dosage: 90 MG, INTRA-ARTERIAL
     Route: 013
  2. LIPIODOL ULTRA-FLUID (ETHIODIZED OIL) [Concomitant]

REACTIONS (2)
  - CEREBRAL INFARCTION [None]
  - PULMONARY OEDEMA [None]
